FAERS Safety Report 15758232 (Version 1)
Quarter: 2018Q4

REPORT INFORMATION
  Report Type: Spontaneous
  Country: CZ (occurrence: CZ)
  Receive Date: 20181225
  Receipt Date: 20181225
  Transmission Date: 20190205
  Serious: Yes (Other)
  Sender: FDA-Public Use
  Company Number: CZ-AUROBINDO-AUR-APL-2018-025647

PATIENT
  Age: 28 Year
  Sex: Female

DRUGS (7)
  1. LACOSAMIDE. [Suspect]
     Active Substance: LACOSAMIDE
     Indication: EPILEPSY
     Dosage: 300 MILLIGRAM (2 X 150 MG).
     Route: 065
  2. VALPROATE [Suspect]
     Active Substance: VALPROIC ACID
     Indication: EPILEPSY
     Dosage: 750 MILLIGRAM
     Route: 065
  3. VALPROATE [Suspect]
     Active Substance: VALPROIC ACID
     Indication: GENERALISED TONIC-CLONIC SEIZURE
     Dosage: 1000 MILLIGRAM
     Route: 065
  4. LEVETIRACETAM. [Suspect]
     Active Substance: LEVETIRACETAM
     Indication: GENERALISED TONIC-CLONIC SEIZURE
     Dosage: 1000 MILLIGRAM, ONCE A DAY,(500 MG, BID)
     Route: 065
     Dates: start: 2015
  5. PERAMPANEL [Concomitant]
     Active Substance: PERAMPANEL
     Indication: PRODUCT USED FOR UNKNOWN INDICATION
     Dosage: 6 MILLIGRAM, ONCE A DAY,(6 MG, QD)
     Route: 065
  6. LAMOTRIGINE. [Suspect]
     Active Substance: LAMOTRIGINE
     Indication: GENERALISED TONIC-CLONIC SEIZURE
     Route: 065
     Dates: start: 2008
  7. VALPROATE [Suspect]
     Active Substance: VALPROIC ACID
     Dosage: 2000 MILLIGRAM, ONCE A DAY
     Route: 065
     Dates: start: 2008

REACTIONS (5)
  - Headache [Recovered/Resolved]
  - Condition aggravated [Recovered/Resolved]
  - Tremor [Recovered/Resolved]
  - Weight increased [Unknown]
  - Dizziness [Unknown]
